FAERS Safety Report 7736764-9 (Version None)
Quarter: 2011Q3

REPORT INFORMATION
  Report Type: 
  Country: None (occurrence: None)
  Receive Date: 20110908
  Receipt Date: 20110902
  Transmission Date: 20111222
  Serious: No
  Sender: FDA-Public Use
  Company Number: PHHY2011US44393

PATIENT
  Sex: Female

DRUGS (1)
  1. GILENYA [Suspect]
     Indication: MULTIPLE SCLEROSIS
     Dosage: 0.5 MG, DAILY
     Route: 048
     Dates: start: 20110512

REACTIONS (6)
  - SENSATION OF PRESSURE [None]
  - COUGH [None]
  - EAR INFECTION [None]
  - PYREXIA [None]
  - HEADACHE [None]
  - EAR PAIN [None]
